FAERS Safety Report 4546093-2 (Version None)
Quarter: 2005Q1

REPORT INFORMATION
  Report Type: 
  Country: None (occurrence: None)
  Receive Date: 20050106
  Receipt Date: 20041227
  Transmission Date: 20050727
  Serious: Yes (Other)
  Sender: FDA-Public Use
  Company Number: IE-BRISTOL-MYERS SQUIBB COMPANY-12806931

PATIENT
  Age: 56 Year
  Sex: Female

DRUGS (6)
  1. METHOTREXATE [Suspect]
     Indication: RHEUMATOID ARTHRITIS
     Dosage: INCREASED TO 15 MG /WEEK OVER SEVERAL MONTHS, THEN DECREASED TO 12.5 MG/WEEK
     Route: 048
  2. CORTICOSTEROID [Concomitant]
  3. NONSTEROIDAL ANTI-INFLAMMATORY [Concomitant]
  4. SULFASALAZINE [Concomitant]
     Dates: start: 20000101
  5. HYDROXYCHLOROQUINE SULFATE [Concomitant]
     Dates: start: 20010101
  6. EPOGEN [Concomitant]
     Route: 058

REACTIONS (1)
  - MYELODYSPLASTIC SYNDROME [None]
